FAERS Safety Report 4350734-2 (Version None)
Quarter: 2004Q2

REPORT INFORMATION
  Report Type: 
  Country: None (occurrence: None)
  Receive Date: 20040428
  Receipt Date: 20040414
  Transmission Date: 20050107
  Serious: Yes (Hospitalization)
  Sender: FDA-Public Use
  Company Number: 2001-FF-C0206

PATIENT
  Age: 50 Year
  Sex: Male

DRUGS (7)
  1. VIRAMUNE [Suspect]
     Indication: HIV INFECTION
     Dosage: 400 MG (200 MG)
     Route: 048
     Dates: start: 20010201, end: 20010308
  2. ZERIT [Concomitant]
  3. LAMIVUDINE (LAMIVUDINE) (TA) [Concomitant]
  4. ASPEGIC 1000 [Concomitant]
  5. SECTRAL (ACEBUTOLOL HYDROCHLORIDE) (TA) [Concomitant]
  6. TRIATEC (RAMIPRIL) (TA) [Concomitant]
  7. OMEPRAZOLE [Concomitant]

REACTIONS (7)
  - CHOLESTASIS [None]
  - DERMATITIS ALLERGIC [None]
  - HEPATITIS [None]
  - OEDEMA MUCOSAL [None]
  - PRURITUS [None]
  - THROMBOCYTOPENIA [None]
  - URTICARIA [None]
